FAERS Safety Report 5354870-3 (Version None)
Quarter: 2007Q2

REPORT INFORMATION
  Report Type: 
  Country: None (occurrence: None)
  Receive Date: 20070612
  Receipt Date: 20070531
  Transmission Date: 20071010
  Serious: Yes (Other)
  Sender: FDA-Public Use
  Company Number: JP-PFIZER INC-2007042016

PATIENT
  Sex: Female
  Weight: 89 kg

DRUGS (6)
  1. GABAPEN [Suspect]
     Indication: EPILEPSY
     Dosage: DAILY DOSE:800MG
     Route: 048
     Dates: start: 20070417, end: 20070419
  2. HYDANTOL [Concomitant]
  3. DEPAKENE [Concomitant]
  4. RIVOTRIL [Concomitant]
     Route: 048
  5. PRIMIDONE [Concomitant]
     Route: 048
  6. DIAMOX [Concomitant]
     Route: 048

REACTIONS (1)
  - ABNORMAL BEHAVIOUR [None]
